FAERS Safety Report 18810473 (Version 6)
Quarter: 2022Q3

REPORT INFORMATION
  Report Type: Spontaneous
  Country: US (occurrence: US)
  Receive Date: 20210129
  Receipt Date: 20220728
  Transmission Date: 20221027
  Serious: No
  Sender: FDA-Public Use
  Company Number: US-PFIZER INC-2021064294

PATIENT
  Age: 63 Year
  Sex: Female

DRUGS (1)
  1. XELJANZ XR [Suspect]
     Active Substance: TOFACITINIB CITRATE
     Indication: Deformity
     Dosage: 11 MG
     Dates: end: 20220719

REACTIONS (5)
  - Off label use [Unknown]
  - Pain [Unknown]
  - Arthropathy [Unknown]
  - Finger deformity [Unknown]
  - Illness [Unknown]
